FAERS Safety Report 8110985-8 (Version None)
Quarter: 2012Q1

REPORT INFORMATION
  Report Type: 
  Country: None (occurrence: None)
  Receive Date: 20120203
  Receipt Date: 20110126
  Transmission Date: 20120608
  Serious: No
  Sender: FDA-Public Use
  Company Number: US-GLAXOSMITHKLINE-A0909984A

PATIENT
  Age: 21 Year
  Sex: Female
  Weight: 133 kg

DRUGS (4)
  1. LAMICTAL [Suspect]
     Route: 048
     Dates: start: 20090726
  2. ZONEGRAN [Concomitant]
     Dosage: 200MG PER DAY
     Route: 048
     Dates: start: 20101105
  3. LAMICTAL [Suspect]
     Indication: CONVULSION
     Dosage: 200MG TWICE PER DAY
     Route: 048
     Dates: start: 20110131
  4. METFORMIN HCL [Concomitant]
     Indication: POLYCYSTIC OVARIES
     Dosage: 500MG TWICE PER DAY
     Route: 048
     Dates: start: 20100310

REACTIONS (2)
  - DRUG PRESCRIBING ERROR [None]
  - DRUG INEFFECTIVE [None]
